FAERS Safety Report 7628614-6 (Version None)
Quarter: 2011Q3

REPORT INFORMATION
  Report Type: 
  Country: None (occurrence: None)
  Receive Date: 20110722
  Receipt Date: 20110216
  Transmission Date: 20111222
  Serious: No
  Sender: FDA-Public Use
  Company Number: US-BAYER-2011-015393

PATIENT
  Sex: Female

DRUGS (6)
  1. LISINOPRIL [Concomitant]
     Dosage: 10 MG, UNK
  2. VITAMIN D [Concomitant]
     Dosage: 1000 U, UNK
  3. BETASERON [Suspect]
     Dosage: .3MG; QOD, WEEK 1-2: 0.25ML, WEEK 3-4: 0.5ML, WEEK 5-6: 0.75ML, WEEK 7+: 1ML QOD
  4. METFORMIN HCL [Concomitant]
     Dosage: 1000 MG, UNK
  5. VICODIN ES [Concomitant]
     Dosage: 7.5-750
  6. IRON [FERROUS SULFATE] [Concomitant]

REACTIONS (3)
  - NASOPHARYNGITIS [None]
  - MULTIPLE SCLEROSIS RELAPSE [None]
  - INJECTION SITE PAIN [None]
